FAERS Safety Report 5051247-5 (Version None)
Quarter: 2006Q3

REPORT INFORMATION
  Report Type: 
  Country: None (occurrence: None)
  Receive Date: 20060710
  Receipt Date: 20060701
  Transmission Date: 20061208
  Serious: Yes (Hospitalization, Other)
  Sender: FDA-Public Use
  Company Number: 2006-07-0145

PATIENT
  Age: 52 Year
  Sex: Female
  Weight: 117.4816 kg

DRUGS (4)
  1. PEG-INTRON [Suspect]
     Indication: HEPATITIS C
     Dosage: SUBCUTANEOUS
     Route: 058
     Dates: start: 20051217
  2. RIBAVIRIN [Suspect]
     Indication: HEPATITIS C
     Dosage: ORAL
     Route: 048
     Dates: start: 20051217
  3. ACTONEL (RISEDRONATE SODIUM) TABLETS [Concomitant]
  4. OMPERAZOLE CAPSULES [Concomitant]

REACTIONS (13)
  - ALOPECIA [None]
  - APPENDICITIS PERFORATED [None]
  - CHOLELITHIASIS [None]
  - DEPRESSION [None]
  - DRUG DOSE OMISSION [None]
  - DRY SKIN [None]
  - FATIGUE [None]
  - GANGRENE [None]
  - POSTOPERATIVE WOUND INFECTION [None]
  - PRURITUS [None]
  - RED BLOOD CELL COUNT DECREASED [None]
  - WEIGHT DECREASED [None]
  - WHITE BLOOD CELL COUNT DECREASED [None]
